FAERS Safety Report 12411178 (Version 1)
Quarter: 2016Q2

REPORT INFORMATION
  Report Type: Spontaneous
  Country: US (occurrence: None)
  Receive Date: 20160526
  Receipt Date: 20160526
  Transmission Date: 20160815
  Serious: No
  Sender: FDA-Public Use
  Company Number: None

PATIENT
  Age: 47 Year
  Sex: Female
  Weight: 53.98 kg

DRUGS (6)
  1. DULERA [Suspect]
     Active Substance: FORMOTEROL FUMARATE DIHYDRATE\MOMETASONE FUROATE
     Indication: ALLERGY TO ANIMAL
     Dosage: 100/5MCG, 2 PUFFS 2XDAY, TWICE DAILY, BY MOUTH
     Route: 048
     Dates: start: 20150207, end: 20160320
  2. DULERA [Suspect]
     Active Substance: FORMOTEROL FUMARATE DIHYDRATE\MOMETASONE FUROATE
     Indication: SKIN ODOUR ABNORMAL
     Dosage: 100/5MCG, 2 PUFFS 2XDAY, TWICE DAILY, BY MOUTH
     Route: 048
     Dates: start: 20150207, end: 20160320
  3. MONTELUKAST [Concomitant]
     Active Substance: MONTELUKAST SODIUM
  4. DULERA [Suspect]
     Active Substance: FORMOTEROL FUMARATE DIHYDRATE\MOMETASONE FUROATE
     Indication: MULTIPLE ALLERGIES
     Dosage: 100/5MCG, 2 PUFFS 2XDAY, TWICE DAILY, BY MOUTH
     Route: 048
     Dates: start: 20150207, end: 20160320
  5. CETIRIZINE HYDROCHLORIDE. [Concomitant]
     Active Substance: CETIRIZINE HYDROCHLORIDE
  6. ADVAIR HFA [Concomitant]
     Active Substance: FLUTICASONE PROPIONATE\SALMETEROL XINAFOATE

REACTIONS (3)
  - Muscle spasms [None]
  - Impaired work ability [None]
  - Insomnia [None]

NARRATIVE: CASE EVENT DATE: 20090205
